FAERS Safety Report 6741935-4 (Version None)
Quarter: 2010Q2

REPORT INFORMATION
  Report Type: 
  Country: None (occurrence: None)
  Receive Date: 20100526
  Receipt Date: 20100516
  Transmission Date: 20101027
  Serious: Yes (Death)
  Sender: FDA-Public Use
  Company Number: B0653415A

PATIENT
  Sex: Female

DRUGS (2)
  1. CEFTAZIDIME SODIUM [Suspect]
     Indication: BRONCHIECTASIS
     Route: 042
     Dates: start: 20090801
  2. GENTAMICIN [Suspect]
     Indication: BRONCHIECTASIS
     Route: 042
     Dates: start: 20090801

REACTIONS (7)
  - ANAPHYLACTIC REACTION [None]
  - CARDIO-RESPIRATORY ARREST [None]
  - DEATH [None]
  - MALAISE [None]
  - NAUSEA [None]
  - OEDEMA MOUTH [None]
  - SWOLLEN TONGUE [None]
